FAERS Safety Report 18209474 (Version 2)
Quarter: 2020Q3

REPORT INFORMATION
  Report Type: Report from Study
  Country: None (occurrence: US)
  Receive Date: 20200828
  Receipt Date: 20200930
  Transmission Date: 20201103
  Serious: Yes (Hospitalization, Other)
  Sender: FDA-Public Use
  Company Number: US-ABBVIE-20K-163-3524214-00

PATIENT
  Age: 81 Year
  Sex: Male
  Weight: 79.45 kg

DRUGS (2)
  1. HUMIRA [Suspect]
     Active Substance: ADALIMUMAB
     Indication: CROHN^S DISEASE
     Route: 058
     Dates: start: 2014
  2. HUMIRA [Suspect]
     Active Substance: ADALIMUMAB
     Indication: PSORIATIC ARTHROPATHY
     Dosage: CITRATE FREE
     Route: 058
     Dates: start: 2017

REACTIONS (10)
  - Ligament sprain [Not Recovered/Not Resolved]
  - Amnesia [Not Recovered/Not Resolved]
  - Psoriasis [Unknown]
  - Concussion [Recovered/Resolved]
  - Multiple fractures [Recovered/Resolved]
  - Rotator cuff syndrome [Recovering/Resolving]
  - Fall [Recovered/Resolved]
  - Arthralgia [Unknown]
  - Cerebral haemorrhage [Recovered/Resolved]
  - Facial bones fracture [Recovered/Resolved]

NARRATIVE: CASE EVENT DATE: 202004
